FAERS Safety Report 10060886 (Version 1)
Quarter: 2014Q2

REPORT INFORMATION
  Report Type: Spontaneous
  Country: SE (occurrence: SE)
  Receive Date: 20140404
  Receipt Date: 20140404
  Transmission Date: 20141212
  Serious: Yes (Hospitalization)
  Sender: FDA-Public Use
  Company Number: SE-ASTRAZENECA-2014SE21377

PATIENT
  Age: 21 Year
  Sex: Female

DRUGS (1)
  1. SEROQUEL DEPOT [Suspect]
     Route: 048

REACTIONS (3)
  - Toxicity to various agents [Recovered/Resolved]
  - Depressed level of consciousness [Recovered/Resolved]
  - Convulsion [Recovered/Resolved]
